FAERS Safety Report 4604383-9 (Version None)
Quarter: 2005Q2

REPORT INFORMATION
  Report Type: 
  Country: None (occurrence: None)
  Receive Date: 20050223
  Receipt Date: 20041102
  Transmission Date: 20051028
  Serious: No
  Sender: FDA-Public Use
  Company Number: PHEH2004US11826

PATIENT
  Age: 80 Year
  Sex: Female

DRUGS (1)
  1. ZELNORM [Suspect]
     Indication: CONSTIPATION
     Dosage: 6 MG ONCE/SINGLE ORAL
     Route: 048
     Dates: start: 20041102, end: 20041102

REACTIONS (1)
  - BURNING SENSATION [None]
